FAERS Safety Report 8406259-8 (Version None)
Quarter: 2012Q2

REPORT INFORMATION
  Report Type: 
  Country: None (occurrence: None)
  Receive Date: 20120604
  Receipt Date: 20120528
  Transmission Date: 20120825
  Serious: Yes (Other)
  Sender: FDA-Public Use
  Company Number: PHFR2004GB04601

PATIENT
  Sex: Male

DRUGS (6)
  1. CLOZARIL [Suspect]
     Dosage: 300 MG/DAY
     Route: 048
     Dates: end: 20120528
  2. LANSOPRAZOLE [Suspect]
     Indication: GASTROOESOPHAGEAL REFLUX DISEASE
     Dosage: 15MG/DAY
     Route: 048
     Dates: start: 20031001
  3. OXAZEPAM [Concomitant]
     Indication: ANXIETY
     Dosage: 10MG/DAY
     Route: 048
     Dates: start: 20010627
  4. PIRENZEPINE [Concomitant]
     Indication: SALIVARY HYPERSECRETION
     Dosage: 50 MG/DAY
     Route: 048
  5. CLOZARIL [Suspect]
     Indication: SCHIZOPHRENIA
     Route: 048
     Dates: start: 19971110
  6. CLOZARIL [Suspect]
     Route: 048
     Dates: start: 20070129

REACTIONS (6)
  - HEPATITIS C VIRUS TEST POSITIVE [None]
  - THROMBOCYTOPENIA [None]
  - RASH [None]
  - WHITE BLOOD CELL COUNT DECREASED [None]
  - CIRRHOSIS ALCOHOLIC [None]
  - NEUTROPHIL COUNT DECREASED [None]
